FAERS Safety Report 10162351 (Version 2)
Quarter: 2014Q2

REPORT INFORMATION
  Report Type: Spontaneous
  Country: US (occurrence: US)
  Receive Date: 20140509
  Receipt Date: 20140609
  Transmission Date: 20141212
  Serious: Yes (Hospitalization, Other)
  Sender: FDA-Public Use
  Company Number: US-ASTELLAS-2014US004984

PATIENT
  Age: 33 Year
  Sex: Female

DRUGS (1)
  1. PROGRAF [Suspect]
     Indication: IMMUNOSUPPRESSION
     Route: 048
     Dates: start: 20080603

REACTIONS (4)
  - Hospitalisation [Unknown]
  - Blood pressure increased [Unknown]
  - Malaise [Unknown]
  - Headache [Unknown]
